FAERS Safety Report 19878637 (Version 1)
Quarter: 2021Q3

REPORT INFORMATION
  Report Type: Spontaneous
  Country: US (occurrence: US)
  Receive Date: 20210924
  Receipt Date: 20210924
  Transmission Date: 20211014
  Serious: Yes (Disabling, Other)
  Sender: FDA-Public Use
  Company Number: US-ORGANON-O2109USA001859

PATIENT
  Sex: Female

DRUGS (1)
  1. NASONEX [Suspect]
     Active Substance: MOMETASONE FUROATE
     Dosage: 50 MICROGRAM/ACTUATION (MC/AC)

REACTIONS (4)
  - Facial bones fracture [Unknown]
  - Nasal septum deviation [Unknown]
  - Product availability issue [Unknown]
  - Muscular dystrophy [Unknown]
